FAERS Safety Report 5884183-2 (Version None)
Quarter: 2008Q3

REPORT INFORMATION
  Report Type: 
  Country: None (occurrence: None)
  Receive Date: 20080911
  Receipt Date: 20080827
  Transmission Date: 20090109
  Serious: Yes (Hospitalization)
  Sender: FDA-Public Use
  Company Number: 0808-SPO-VANT-0066

PATIENT
  Age: 78 Year
  Sex: Male

DRUGS (2)
  1. VANTAS [Suspect]
     Indication: PROSTATE CANCER
     Dosage: 50 MG, 1 IN 1 Y, SUB Q. IMPLANT
     Route: 058
     Dates: start: 20080515, end: 20080731
  2. SANCTURA XR (TROSPIUM CHLORIDE) [Concomitant]

REACTIONS (1)
  - IMPLANT SITE CELLULITIS [None]
